FAERS Safety Report 6000264-7 (Version None)
Quarter: 2008Q4

REPORT INFORMATION
  Report Type: 
  Country: None (occurrence: None)
  Receive Date: 20081211
  Receipt Date: 20081211
  Transmission Date: 20090506
  Serious: Yes (Life-Threatening, Hospitalization, Disabling)
  Sender: FDA-Public Use
  Company Number: None

PATIENT
  Age: 59 Year
  Sex: Male
  Weight: 88.4514 kg

DRUGS (3)
  1. GEMFIBROZIL [Suspect]
     Indication: BLOOD CHOLESTEROL INCREASED
     Dosage: 600MG TWICE A DAY PO
     Route: 048
     Dates: start: 20070101, end: 20080907
  2. GEMFIBROZIL [Suspect]
     Indication: DIABETES MELLITUS
     Dosage: 600MG TWICE A DAY PO
     Route: 048
     Dates: start: 20070101, end: 20080907
  3. SIMVASTATIN [Suspect]
     Indication: BLOOD CHOLESTEROL INCREASED
     Dosage: 80MG ONCE A DAY PO
     Route: 048
     Dates: start: 20080807, end: 20080907

REACTIONS (3)
  - DIALYSIS [None]
  - DYSSTASIA [None]
  - RHABDOMYOLYSIS [None]
